FAERS Safety Report 10447989 (Version 12)
Quarter: 2014Q4

REPORT INFORMATION
  Report Type: Report from Study
  Country: TW (occurrence: TW)
  Receive Date: 20140911
  Receipt Date: 20141107
  Transmission Date: 20150528
  Serious: Yes (Life-Threatening, Hospitalization)
  Sender: FDA-Public Use
  Company Number: TW-009507513-1409TWN001614

PATIENT
  Age: 54 Year
  Sex: Male
  Weight: 47.7 kg

DRUGS (8)
  1. DEX CTM [Concomitant]
     Indication: PRURITUS
     Dosage: 2 MG, QID
     Route: 048
     Dates: start: 20140718, end: 20140916
  2. CUTIVATE [Concomitant]
     Active Substance: FLUTICASONE PROPIONATE
     Indication: PRURITUS
     Dosage: UNK, BID
     Route: 061
     Dates: start: 20140718, end: 20140905
  3. CUTIVATE [Concomitant]
     Active Substance: FLUTICASONE PROPIONATE
     Dosage: UNK, PRN
     Route: 061
     Dates: start: 20140905, end: 20140923
  4. MYCOMB [Concomitant]
     Indication: NASOPHARYNGEAL CANCER
     Dosage: 2 DROPS, TID, FORMULATION:SOLUTION
     Route: 061
     Dates: start: 20140606
  5. PEMBROLIZUMAB. [Suspect]
     Active Substance: PEMBROLIZUMAB
     Indication: NEOPLASM MALIGNANT
     Dosage: 10 MG/KG, QOW
     Route: 042
     Dates: start: 20140704, end: 20140801
  6. INDOL [Concomitant]
     Indication: NECK PAIN
     Dosage: UNK, PRN
     Route: 061
     Dates: start: 20140606, end: 20140904
  7. NEXIUM [Concomitant]
     Active Substance: ESOMEPRAZOLE MAGNESIUM
     Indication: GASTROOESOPHAGEAL REFLUX PROPHYLAXIS
     Dosage: 40 MG, QD
     Route: 048
     Dates: start: 20140620
  8. PEMBROLIZUMAB. [Suspect]
     Active Substance: PEMBROLIZUMAB
     Dosage: 10 MG/KG, QOW
     Route: 042
     Dates: start: 20140815, end: 20140815

REACTIONS (2)
  - Hepatitis [Recovered/Resolved]
  - Pneumonia [Recovered/Resolved]

NARRATIVE: CASE EVENT DATE: 20140828
